FAERS Safety Report 4753472-7 (Version None)
Quarter: 2005Q3

REPORT INFORMATION
  Report Type: 
  Country: None (occurrence: None)
  Receive Date: 20050824
  Receipt Date: 20050818
  Transmission Date: 20060218
  Serious: Yes (Other)
  Sender: FDA-Public Use
  Company Number: HQWYE002918AUG05

PATIENT
  Age: 61 Year
  Sex: Female

DRUGS (3)
  1. PANTOZOL (PANTOPRAZOLE, TABLET, DELAYED RELEASE) [Suspect]
     Indication: GASTROENTERITIS HELICOBACTER
     Dosage: 40 MG 2X PER 1 DAY
     Route: 048
  2. AMOXICILLIN [Suspect]
     Indication: GASTROENTERITIS HELICOBACTER
     Dosage: 1000 MG 2X PER 1 DAY
     Route: 048
  3. CLARITHROMYCIN [Suspect]
     Indication: GASTROENTERITIS HELICOBACTER
     Dosage: 500 MG 2X PER 1 DAY
     Route: 048

REACTIONS (2)
  - PRURITUS [None]
  - RASH [None]
